FAERS Safety Report 10033526 (Version 2)
Quarter: 2014Q1

REPORT INFORMATION
  Report Type: Spontaneous
  Country: US (occurrence: US)
  Receive Date: 20140325
  Receipt Date: 20140331
  Transmission Date: 20141002
  Serious: No
  Sender: FDA-Public Use
  Company Number: US-BIOGENIDEC-2014BI023822

PATIENT
  Age: 47 Year
  Sex: Female

DRUGS (2)
  1. AVONEX [Suspect]
     Indication: MULTIPLE SCLEROSIS
     Route: 030
     Dates: start: 20030924
  2. AVONEX [Suspect]
     Indication: MULTIPLE SCLEROSIS
     Route: 030
     Dates: start: 20140310

REACTIONS (6)
  - Mobility decreased [Recovered/Resolved]
  - Fear [Unknown]
  - Tremor [Recovered/Resolved]
  - Anxiety [Unknown]
  - Headache [Recovered/Resolved]
  - Emotional distress [Recovered/Resolved]
